FAERS Safety Report 8408593 (Version 2)
Quarter: 2013Q4

REPORT INFORMATION
  Report Type: Spontaneous
  Country: US (occurrence: US)
  Receive Date: 20120216
  Receipt Date: 20131216
  Transmission Date: 20140711
  Serious: Yes (Other)
  Sender: FDA-Public Use
  Company Number: US-BAYER-2012-014766

PATIENT
  Age: 18 Year
  Sex: Female

DRUGS (7)
  1. YAZ [Suspect]
     Dosage: UNK
     Dates: start: 200907, end: 201005
  2. ACIPHEX [Concomitant]
     Dosage: UNK
     Route: 048
     Dates: start: 20091202
  3. MORPHINE [Concomitant]
     Dosage: 4 MG, UNK
     Route: 042
     Dates: start: 20091202
  4. ZOFRAN [Concomitant]
     Dosage: 4 MG, UNK
     Route: 042
     Dates: start: 20091202
  5. CEPHALEXIN [Concomitant]
     Dosage: 500 MG, UNK
     Route: 048
     Dates: start: 20091202
  6. ONDANSETRON [Concomitant]
     Dosage: 4 MG, UNK
     Route: 048
     Dates: start: 20091202
  7. DICYCLOMINE [Concomitant]
     Dosage: 20 MG, UNK
     Route: 048
     Dates: start: 20091202

REACTIONS (9)
  - Gallbladder disorder [None]
  - Cholecystitis chronic [None]
  - Pain [None]
  - Anxiety [None]
  - Gastrointestinal disorder [None]
  - Post cholecystectomy syndrome [None]
  - Psychological trauma [None]
  - Anhedonia [None]
  - Injury [None]
